FAERS Safety Report 20613462 (Version 3)
Quarter: 2022Q2

REPORT INFORMATION
  Report Type: Report from Study
  Country: US (occurrence: None)
  Receive Date: 20220319
  Receipt Date: 20220429
  Transmission Date: 20220721
  Serious: Yes (Death, Life-Threatening, Hospitalization)
  Sender: FDA-Public Use
  Company Number: 2022A113703

PATIENT
  Sex: Male

DRUGS (1)
  1. FASENRA [Suspect]
     Active Substance: BENRALIZUMAB
     Indication: Asthma
     Route: 058
     Dates: start: 20220308

REACTIONS (6)
  - Death [Fatal]
  - Respiratory failure [Unknown]
  - Confusional state [Unknown]
  - Acute kidney injury [Unknown]
  - Blood potassium increased [Unknown]
  - Hypothermia [Unknown]
